FAERS Safety Report 18104631 (Version 4)
Quarter: 2022Q2

REPORT INFORMATION
  Report Type: Spontaneous
  Country: US (occurrence: US)
  Receive Date: 20200803
  Receipt Date: 20220603
  Transmission Date: 20220720
  Serious: Yes (Disabling)
  Sender: FDA-Public Use
  Company Number: US-TEVA-2020-US-1808796

PATIENT
  Age: 53 Year
  Sex: Female

DRUGS (11)
  1. DOCETAXEL [Suspect]
     Active Substance: DOCETAXEL
     Indication: Breast cancer
     Dosage: DOSAGE: 75 MILLIGRAM, NO OF CYCLE: 6, EVERY THREE WEEKS
     Route: 065
     Dates: start: 20151130, end: 20160322
  2. DOCETAXEL [Suspect]
     Active Substance: DOCETAXEL
     Indication: Breast cancer
     Dosage: DOSAGE: 75 MILLIGRAM, NO OF CYCLE: 6, EVERY THREE WEEKS
     Route: 065
     Dates: start: 20151130, end: 20160322
  3. VITAMINS [Concomitant]
     Active Substance: VITAMINS
     Dates: start: 2009
  4. MELATONIN [Concomitant]
     Active Substance: MELATONIN
     Dates: start: 2009
  5. MIRTAZAPINE [Concomitant]
     Active Substance: MIRTAZAPINE
     Dates: start: 2009
  6. ARIPIPRAZOLE [Concomitant]
     Active Substance: ARIPIPRAZOLE
     Dates: start: 2009
  7. BUPROPION [Concomitant]
     Active Substance: BUPROPION
     Dates: start: 2009
  8. LORAZEPAM [Concomitant]
     Active Substance: LORAZEPAM
     Dates: start: 2009
  9. PARAPLATIN [Concomitant]
     Active Substance: CARBOPLATIN
  10. HERCEPTIN [Concomitant]
     Active Substance: TRASTUZUMAB
  11. PERJETA [Concomitant]
     Active Substance: PERTUZUMAB

REACTIONS (4)
  - Alopecia [Not Recovered/Not Resolved]
  - Madarosis [Not Recovered/Not Resolved]
  - Hair texture abnormal [Not Recovered/Not Resolved]
  - Hair colour changes [Not Recovered/Not Resolved]

NARRATIVE: CASE EVENT DATE: 20160101
